FAERS Safety Report 6501083-5 (Version None)
Quarter: 2009Q4

REPORT INFORMATION
  Report Type: 
  Country: None (occurrence: None)
  Receive Date: 20091216
  Receipt Date: 20090707
  Transmission Date: 20100525
  Serious: No
  Sender: FDA-Public Use
  Company Number: A0795722A

PATIENT
  Age: 32 Year
  Sex: Male

DRUGS (1)
  1. COMMIT [Suspect]

REACTIONS (7)
  - APHONIA [None]
  - COUGH [None]
  - DYSPHONIA [None]
  - GINGIVAL PAIN [None]
  - MOUTH ULCERATION [None]
  - SENSITIVITY OF TEETH [None]
  - THROAT IRRITATION [None]
